FAERS Safety Report 5820523-8 (Version None)
Quarter: 2008Q3

REPORT INFORMATION
  Report Type: 
  Country: None (occurrence: None)
  Receive Date: 20080724
  Receipt Date: 20071029
  Transmission Date: 20090109
  Serious: No
  Sender: FDA-Public Use
  Company Number: A0683029A

PATIENT
  Age: 46 Year
  Sex: Male
  Weight: 90.9 kg

DRUGS (7)
  1. AVANDIA [Suspect]
     Route: 048
  2. CLARITIN [Concomitant]
  3. CARTIA XT [Concomitant]
  4. CRESTOR [Concomitant]
  5. METFORMIN [Concomitant]
  6. TRICOR [Concomitant]
  7. DILTIAZEM HCL [Concomitant]

REACTIONS (1)
  - PAROTID GLAND ENLARGEMENT [None]
